FAERS Safety Report 25131117 (Version 1)
Quarter: 2025Q1

REPORT INFORMATION
  Report Type: Other
  Country: US (occurrence: US)
  Receive Date: 20250327
  Receipt Date: 20250327
  Transmission Date: 20250409
  Serious: Yes (Hospitalization, Other)
  Sender: B BRAUN
  Company Number: US-B.Braun Medical Inc.-2173788

PATIENT
  Age: 21 Year
  Sex: Female

DRUGS (3)
  1. BUPIVACAINE HYDROCHLORIDE [Suspect]
     Active Substance: BUPIVACAINE HYDROCHLORIDE
  2. LIDOCAINE HYDROCHLORIDE AND EPINEPHRINE [Suspect]
     Active Substance: EPINEPHRINE\LIDOCAINE HYDROCHLORIDE
  3. FENTANYL [Suspect]
     Active Substance: FENTANYL

REACTIONS (2)
  - Facial paralysis [Recovered/Resolved]
  - Muscular weakness [Recovered/Resolved]
